FAERS Safety Report 7086345-8 (Version None)
Quarter: 2010Q4

REPORT INFORMATION
  Report Type: 
  Country: None (occurrence: None)
  Receive Date: 20101105
  Receipt Date: 20101103
  Transmission Date: 20110411
  Serious: Yes (Life-Threatening)
  Sender: FDA-Public Use
  Company Number: DE-SANOFI-AVENTIS-2010SA066873

PATIENT
  Age: 76 Year
  Sex: Male

DRUGS (7)
  1. OXALIPLATIN [Suspect]
  2. AVASTIN [Suspect]
     Route: 042
     Dates: start: 20100830, end: 20100830
  3. FLUOROURACIL [Suspect]
     Route: 042
  4. ALOXI [Concomitant]
     Dates: start: 20100816
  5. FENISTIL [Concomitant]
     Dates: start: 20100816
  6. DEXAMETHASONE [Concomitant]
     Dates: start: 20100816
  7. METOCLOPRAMIDE [Concomitant]
     Dates: start: 20100816

REACTIONS (3)
  - CARDIAC ARREST [None]
  - CHEST PAIN [None]
  - CORONARY ARTERY STENOSIS [None]
